FAERS Safety Report 6904920-5 (Version None)
Quarter: 2010Q3

REPORT INFORMATION
  Report Type: 
  Country: None (occurrence: None)
  Receive Date: 20100804
  Receipt Date: 20090804
  Transmission Date: 20110219
  Serious: No
  Sender: FDA-Public Use
  Company Number: US-PFIZER INC-2009232158

PATIENT
  Sex: Female

DRUGS (2)
  1. LYRICA [Suspect]
     Indication: NEURALGIA
     Dosage: 150 MG, 2X/DAY
     Route: 048
     Dates: start: 20090101, end: 20090601
  2. NORCO [Concomitant]
     Dosage: UNK

REACTIONS (3)
  - CAFE AU LAIT SPOTS [None]
  - OEDEMA PERIPHERAL [None]
  - SKIN DISCOLOURATION [None]
